FAERS Safety Report 10085097 (Version 1)
Quarter: 2014Q2

REPORT INFORMATION
  Report Type: Report from Study
  Country: US (occurrence: US)
  Receive Date: 20140417
  Receipt Date: 20140417
  Transmission Date: 20141212
  Serious: Yes (Hospitalization)
  Sender: FDA-Public Use
  Company Number: US-ACTELION-A-NJ2014-97325

PATIENT
  Age: 46 Year
  Sex: Male

DRUGS (3)
  1. MACITENTAN [Suspect]
     Indication: COR PULMONALE CHRONIC
     Dosage: 10 MG, UNK
     Route: 048
  2. LYRICA [Suspect]
  3. REMODULIN [Concomitant]

REACTIONS (5)
  - Dyskinesia [Unknown]
  - Amnesia [Unknown]
  - Somnolence [Unknown]
  - Hypersensitivity [Unknown]
  - Fluid retention [Unknown]
